FAERS Safety Report 4804788-7 (Version None)
Quarter: 2005Q4

REPORT INFORMATION
  Report Type: 
  Country: None (occurrence: None)
  Receive Date: 20051017
  Receipt Date: 20051010
  Transmission Date: 20060501
  Serious: Yes (Other)
  Sender: FDA-Public Use
  Company Number: 200513371BCC

PATIENT
  Age: 25 Year
  Sex: Female
  Weight: 68.0396 kg

DRUGS (4)
  1. MIDOL [Suspect]
     Indication: DYSMENORRHOEA
     Dosage: 220 MG, ONCE, ORAL
     Route: 048
     Dates: start: 20050819
  2. PAXIL [Concomitant]
  3. PROTONIX [Concomitant]
  4. ADVAIR DISKUS 100/50 [Concomitant]

REACTIONS (13)
  - ANAPHYLACTIC REACTION [None]
  - BLOOD PRESSURE DIASTOLIC INCREASED [None]
  - DRUG HYPERSENSITIVITY [None]
  - DYSPHONIA [None]
  - DYSPNOEA [None]
  - ERYTHEMA [None]
  - HEART RATE INCREASED [None]
  - PHARYNGEAL OEDEMA [None]
  - PRURITUS [None]
  - PYREXIA [None]
  - SWELLING FACE [None]
  - SWOLLEN TONGUE [None]
  - URTICARIA [None]
